FAERS Safety Report 16110516 (Version 1)
Quarter: 2019Q1

REPORT INFORMATION
  Report Type: Spontaneous
  Country: US (occurrence: US)
  Receive Date: 20190325
  Receipt Date: 20190325
  Transmission Date: 20190418
  Serious: No
  Sender: FDA-Public Use
  Company Number: US-AUROBINDO-AUR-APU-2018-034177

PATIENT
  Sex: Male

DRUGS (1)
  1. GABAPENTIN 100MG [Suspect]
     Active Substance: GABAPENTIN
     Indication: PRODUCT USED FOR UNKNOWN INDICATION
     Dosage: THREE TIMES A DAY
     Route: 065

REACTIONS (2)
  - Headache [Unknown]
  - Head discomfort [Unknown]
